FAERS Safety Report 5373979-1 (Version None)
Quarter: 2007Q2

REPORT INFORMATION
  Report Type: 
  Country: None (occurrence: None)
  Receive Date: 20070627
  Receipt Date: 20070612
  Transmission Date: 20071010
  Serious: Yes (Hospitalization)
  Sender: FDA-Public Use
  Company Number: APP200700189

PATIENT
  Age: 2 Year
  Sex: Male
  Weight: 14.6512 kg

DRUGS (1)
  1. VANCOMYCIN HYDROCHLORIDE [Suspect]
     Indication: SPLENIC ABSCESS
     Dosage: 200 MG IN HOME PUMP 50 ML/HR EVERY 8 HOURS (1 IN 8 HR), INTRAVENOUS
     Route: 042
     Dates: start: 20070608

REACTIONS (6)
  - COUGH [None]
  - CYANOSIS [None]
  - DRUG HYPERSENSITIVITY [None]
  - HYPERHIDROSIS [None]
  - NAUSEA [None]
  - RASH [None]
